FAERS Safety Report 4853821-5 (Version None)
Quarter: 2005Q4

REPORT INFORMATION
  Report Type: 
  Country: None (occurrence: None)
  Receive Date: 20051213
  Receipt Date: 20051201
  Transmission Date: 20060501
  Serious: Yes (Hospitalization, Other)
  Sender: FDA-Public Use
  Company Number: 2005BI021573

PATIENT
  Age: 26 Year
  Sex: Female

DRUGS (2)
  1. AVONEX [Suspect]
     Indication: MULTIPLE SCLEROSIS
     Dosage: 30 UG; QW; IM
     Route: 030
     Dates: start: 20040917, end: 20051001
  2. SEIZURE MEDICATION [Concomitant]

REACTIONS (4)
  - ASTHENIA [None]
  - CONVULSION [None]
  - HEMIPLEGIA [None]
  - SPEECH DISORDER [None]
